FAERS Safety Report 8868052 (Version 2)
Quarter: 2013Q3

REPORT INFORMATION
  Report Type: Spontaneous
  Country: US (occurrence: US)
  Receive Date: 20121026
  Receipt Date: 20130930
  Transmission Date: 20140515
  Serious: No
  Sender: FDA-Public Use
  Company Number: US-AMGEN-USASP2012040452

PATIENT
  Sex: Female

DRUGS (7)
  1. ENBREL [Suspect]
     Indication: RHEUMATOID ARTHRITIS
     Dosage: 50 MG, QWK
  2. PREDNISONE [Concomitant]
     Dosage: 1 MG, UNK
  3. HUMIRA [Concomitant]
     Dosage: 40 MG, UNK
  4. LEFLUNOMIDE [Concomitant]
     Dosage: 10 MG, UNK
  5. VITAMIN B12                        /00056201/ [Concomitant]
     Dosage: 1000 UNK, UNK
  6. FOLIC ACID [Concomitant]
     Dosage: UNK
  7. VITAMIN D3 [Concomitant]
     Dosage: 1000 UNK, UNK

REACTIONS (3)
  - Weight decreased [Unknown]
  - Oedema peripheral [Unknown]
  - Drug ineffective [Unknown]
